FAERS Safety Report 13794335 (Version 5)
Quarter: 2020Q3

REPORT INFORMATION
  Report Type: Spontaneous
  Country: US (occurrence: US)
  Receive Date: 20170726
  Receipt Date: 20200721
  Transmission Date: 20201102
  Serious: Yes (Other)
  Sender: FDA-Public Use
  Company Number: US-PFIZER INC-2017102747

PATIENT
  Age: 30 Year
  Sex: Female
  Weight: 83.91 kg

DRUGS (2)
  1. XELJANZ [Suspect]
     Active Substance: TOFACITINIB CITRATE
     Dosage: 10 MG, 2X/DAY (2 TABLETS OF 5 MG)/ (TWO TABLETS TWICE DAILY, TWO IN MORNING AND TWO IN EVENING)
     Route: 048
     Dates: start: 2017
  2. XELJANZ [Suspect]
     Active Substance: TOFACITINIB CITRATE
     Indication: ALOPECIA AREATA
     Dosage: 10 MG, 2X/DAY (2 TABLETS OF 5 MG)
     Route: 048
     Dates: start: 20170303, end: 2017

REACTIONS (6)
  - Herpes zoster [Recovered/Resolved]
  - Off label use [Unknown]
  - Abortion spontaneous [Recovered/Resolved]
  - Product use in unapproved indication [Unknown]
  - Prescribed overdose [Unknown]
  - Fatigue [Unknown]

NARRATIVE: CASE EVENT DATE: 2017
